FAERS Safety Report 20391578 (Version 1)
Quarter: 2022Q1

REPORT INFORMATION
  Report Type: Spontaneous
  Country: US (occurrence: None)
  Receive Date: 20220127
  Receipt Date: 20220127
  Transmission Date: 20220423
  Serious: Yes (Disabling)
  Sender: FDA-Public Use
  Company Number: None

PATIENT
  Age: 26 Year
  Sex: Female
  Weight: 58.97 kg

DRUGS (1)
  1. NEXPLANON [Suspect]
     Active Substance: ETONOGESTREL

REACTIONS (6)
  - Complication associated with device [None]
  - Hypoaesthesia [None]
  - Menstruation irregular [None]
  - Depression [None]
  - Acne [None]
  - Complication of device removal [None]

NARRATIVE: CASE EVENT DATE: 20210908
